FAERS Safety Report 15222895 (Version 1)
Quarter: 2018Q3

REPORT INFORMATION
  Report Type: Spontaneous
  Country: CA (occurrence: CA)
  Receive Date: 20180731
  Receipt Date: 20180731
  Transmission Date: 20181010
  Serious: Yes (Hospitalization, Other)
  Sender: FDA-Public Use
  Company Number: CA-ALEXION PHARMACEUTICALS INC.-A201809523

PATIENT
  Age: 3 Year
  Sex: Male

DRUGS (1)
  1. SOLIRIS [Suspect]
     Active Substance: ECULIZUMAB
     Indication: ATYPICAL HAEMOLYTIC URAEMIC SYNDROME
     Dosage: UNK
     Route: 065
     Dates: start: 201710

REACTIONS (4)
  - Pneumococcal infection [Recovered/Resolved]
  - Pneumonia [Recovered/Resolved]
  - Crohn^s disease [Not Recovered/Not Resolved]
  - Meningococcal infection [Recovered/Resolved]
